FAERS Safety Report 6744911-0 (Version None)
Quarter: 2010Q2

REPORT INFORMATION
  Report Type: 
  Country: None (occurrence: None)
  Receive Date: 20100527
  Receipt Date: 20100520
  Transmission Date: 20101027
  Serious: Yes (Hospitalization, Other)
  Sender: FDA-Public Use
  Company Number: US-ABBOTT-10P-163-0646525-00

PATIENT
  Sex: Male
  Weight: 95.34 kg

DRUGS (12)
  1. HUMIRA [Suspect]
     Indication: RHEUMATOID ARTHRITIS
     Route: 058
     Dates: start: 20090701, end: 20090801
  2. DIURETIC [Suspect]
     Indication: DRUG USE FOR UNKNOWN INDICATION
     Dates: start: 20090901, end: 20090901
  3. ADVAIR DISKUS 100/50 [Concomitant]
     Indication: ASTHMA
  4. DOXYCYCLINE [Concomitant]
     Indication: DRUG USE FOR UNKNOWN INDICATION
     Route: 048
  5. LORATADINE [Concomitant]
     Indication: DRUG USE FOR UNKNOWN INDICATION
  6. OMEPRAZOLE [Concomitant]
     Indication: DRUG USE FOR UNKNOWN INDICATION
  7. PROAIR HFA [Concomitant]
     Indication: ASTHMA
     Route: 055
  8. SPIRONOLACTONE [Concomitant]
     Indication: DRUG USE FOR UNKNOWN INDICATION
  9. CHANTIX [Concomitant]
     Indication: SMOKING CESSATION THERAPY
  10. METHADONE [Concomitant]
     Indication: PAIN
  11. FUROSEMIDE [Concomitant]
     Indication: OEDEMA PERIPHERAL
  12. MULTI-VITAMIN [Concomitant]
     Indication: DRUG USE FOR UNKNOWN INDICATION

REACTIONS (14)
  - ASTHENIA [None]
  - BLOOD POTASSIUM ABNORMAL [None]
  - BLOOD SODIUM ABNORMAL [None]
  - CONFUSIONAL STATE [None]
  - CYSTITIS [None]
  - DEHYDRATION [None]
  - HAEMATEMESIS [None]
  - HEPATIC FAILURE [None]
  - HEPATITIS C [None]
  - INCOHERENT [None]
  - LIVER FUNCTION TEST ABNORMAL [None]
  - NEPHROLITHIASIS [None]
  - OEDEMA PERIPHERAL [None]
  - STAPHYLOCOCCAL SEPSIS [None]
